FAERS Safety Report 7915630-X (Version None)
Quarter: 2011Q4

REPORT INFORMATION
  Report Type: 
  Country: None (occurrence: None)
  Receive Date: 20111115
  Receipt Date: 20111102
  Transmission Date: 20120403
  Serious: Yes (Hospitalization)
  Sender: FDA-Public Use
  Company Number: US-GLAXOSMITHKLINE-A0871278A

PATIENT
  Age: 53 Year
  Sex: Male
  Weight: 126.8 kg

DRUGS (5)
  1. ZESTRIL [Concomitant]
  2. LIPITOR [Concomitant]
  3. GLUCOPHAGE [Concomitant]
     Dates: end: 20030417
  4. AVANDIA [Suspect]
     Indication: TYPE 2 DIABETES MELLITUS
     Dosage: 4MG PER DAY
     Route: 048
     Dates: start: 19990101, end: 20030417
  5. ZOCOR [Concomitant]

REACTIONS (5)
  - CORONARY ARTERY DISEASE [None]
  - CARDIAC FAILURE CONGESTIVE [None]
  - MYOCARDIAL INFARCTION [None]
  - IMPLANTABLE DEFIBRILLATOR INSERTION [None]
  - ATRIAL FIBRILLATION [None]
